FAERS Safety Report 25583540 (Version 2)
Quarter: 2025Q3

REPORT INFORMATION
  Report Type: Spontaneous
  Country: EU (occurrence: EU)
  Receive Date: 20250721
  Receipt Date: 20250821
  Transmission Date: 20251021
  Serious: Yes (Hospitalization, Other)
  Sender: NOVO NORDISK
  Company Number: EU-NOVOPROD-1477765

PATIENT
  Age: 648 Month
  Sex: Female
  Weight: 122 kg

DRUGS (9)
  1. WEGOVY [Suspect]
     Active Substance: SEMAGLUTIDE
     Indication: Insulin resistance
  2. WEGOVY [Suspect]
     Active Substance: SEMAGLUTIDE
     Indication: Obesity
     Route: 058
     Dates: start: 20250131, end: 20250207
  3. PANTOPRAZOLE [Concomitant]
     Active Substance: PANTOPRAZOLE
     Indication: Hypertension
     Dosage: 20 MG, QD(1-0-0)
     Dates: start: 2020
  4. TORSEMIDE [Concomitant]
     Active Substance: TORSEMIDE
     Indication: Insulin resistance
     Dosage: 10 MG, QD(1-0-0)
     Dates: start: 2010
  5. CANDESARTAN [Concomitant]
     Active Substance: CANDESARTAN
     Indication: Hypertension
     Dosage: 32 MG, QD(1-0-0)
     Dates: start: 2010
  6. VERAPAMIL [Concomitant]
     Active Substance: VERAPAMIL HYDROCHLORIDE
     Indication: Atrial fibrillation
     Dosage: 80 MG, QD(1-0-1)
     Dates: start: 2020
  7. PRADAXA [Concomitant]
     Active Substance: DABIGATRAN ETEXILATE MESYLATE
     Indication: Atrial fibrillation
     Dosage: 150 MG, QD
     Dates: start: 2020
  8. JARDIANCE [Concomitant]
     Active Substance: EMPAGLIFLOZIN
     Indication: Insulin resistance
     Dosage: 25 MG, QD(1-0-0)
     Dates: start: 2020
  9. AMLODIPINE [Concomitant]
     Active Substance: AMLODIPINE BESYLATE
     Indication: Hypertension
     Dosage: 5 MG, QD(1-0-0)
     Dates: start: 2020

REACTIONS (4)
  - Arrhythmia [Unknown]
  - Atrial fibrillation [Unknown]
  - Tachycardia [Unknown]
  - Pruritus [Unknown]

NARRATIVE: CASE EVENT DATE: 20250203
